FAERS Safety Report 24817795 (Version 1)
Quarter: 2025Q1

REPORT INFORMATION
  Report Type: Spontaneous
  Country: IT (occurrence: IT)
  Receive Date: 20250108
  Receipt Date: 20250108
  Transmission Date: 20250408
  Serious: Yes (Hospitalization)
  Sender: Haleon PLC
  Company Number: None

PATIENT
  Age: 21 Year
  Sex: Female
  Weight: 50 kg

DRUGS (1)
  1. ACETAMINOPHEN [Suspect]
     Active Substance: ACETAMINOPHEN
     Indication: Product used for unknown indication
     Route: 048
     Dates: start: 20240329, end: 20240329

REACTIONS (1)
  - Intentional overdose [Recovered/Resolved]

NARRATIVE: CASE EVENT DATE: 20240329
